FAERS Safety Report 8571544-6 (Version None)
Quarter: 2012Q3

REPORT INFORMATION
  Report Type: 
  Country: None (occurrence: None)
  Receive Date: 20120806
  Receipt Date: 20120730
  Transmission Date: 20120928
  Serious: Yes (Hospitalization)
  Sender: FDA-Public Use
  Company Number: PHHY2012EC067066

PATIENT
  Sex: Female

DRUGS (1)
  1. ZOLEDRONOC ACID [Suspect]
     Indication: OSTEOPOROSIS
     Dosage: 5MG/100ML YEARLY
     Route: 042
     Dates: start: 20100801

REACTIONS (6)
  - THROMBOSIS [None]
  - HAEMORRHOIDS [None]
  - HYPOTHYROIDISM [None]
  - RECTAL HAEMORRHAGE [None]
  - DYSPNOEA [None]
  - GENITAL HAEMORRHAGE [None]
